FAERS Safety Report 5626080-3 (Version None)
Quarter: 2008Q1

REPORT INFORMATION
  Report Type: 
  Country: None (occurrence: None)
  Receive Date: 20080214
  Receipt Date: 20080212
  Transmission Date: 20080703
  Serious: Yes (Disabling, Other)
  Sender: FDA-Public Use
  Company Number: GB-BRISTOL-MYERS SQUIBB COMPANY-14072938

PATIENT
  Age: 40 Year
  Sex: Female
  Weight: 56 kg

DRUGS (1)
  1. FUNGIZONE [Suspect]
     Route: 042
     Dates: start: 20080128, end: 20080130

REACTIONS (5)
  - ABNORMAL BEHAVIOUR [None]
  - COORDINATION ABNORMAL [None]
  - ENCEPHALOPATHY [None]
  - MUSCLE TWITCHING [None]
  - TREMOR [None]
